FAERS Safety Report 25767855 (Version 1)
Quarter: 2025Q3

REPORT INFORMATION
  Report Type: Report from Study
  Country: ZA (occurrence: ZA)
  Receive Date: 20250905
  Receipt Date: 20250905
  Transmission Date: 20251021
  Serious: Yes (Hospitalization)
  Sender: ABBVIE
  Company Number: ZA-ABBVIE-6445444

PATIENT
  Age: 38 Year
  Sex: Male

DRUGS (1)
  1. BOTOX [Suspect]
     Active Substance: ONABOTULINUMTOXINA
     Indication: Craniocerebral injury
     Route: 065
     Dates: start: 20240904, end: 20240904

REACTIONS (2)
  - Surgery [Unknown]
  - Off label use [Unknown]
